FAERS Safety Report 10184347 (Version 2)
Quarter: 2014Q2

REPORT INFORMATION
  Report Type: Spontaneous
  Country: AU (occurrence: AU)
  Receive Date: 20140520
  Receipt Date: 20140520
  Transmission Date: 20141212
  Serious: Yes (Other)
  Sender: FDA-Public Use
  Company Number: AU-ABBVIE-13P-008-1173457-00

PATIENT
  Age: 74 Year
  Sex: Male

DRUGS (1)
  1. LUCRIN [Suspect]
     Indication: PRODUCT USED FOR UNKNOWN INDICATION
     Dates: start: 20131106

REACTIONS (6)
  - Neuropathy peripheral [Not Recovered/Not Resolved]
  - Mass [Recovered/Resolved]
  - Hypersomnia [Unknown]
  - Lethargy [Unknown]
  - Renal pain [Not Recovered/Not Resolved]
  - Muscle strain [Not Recovered/Not Resolved]
